FAERS Safety Report 11112792 (Version 1)
Quarter: 2015Q2

REPORT INFORMATION
  Report Type: Spontaneous
  Country: US (occurrence: None)
  Receive Date: 20150513
  Receipt Date: 20150513
  Transmission Date: 20150821
  Serious: Yes (Hospitalization, Other)
  Sender: FDA-Public Use
  Company Number: None

PATIENT
  Age: 56 Year
  Sex: Male
  Weight: 104.33 kg

DRUGS (12)
  1. ZETIA [Concomitant]
     Active Substance: EZETIMIBE
  2. LISINOPRIL. [Concomitant]
     Active Substance: LISINOPRIL
  3. ASPIRIN. [Concomitant]
     Active Substance: ASPIRIN
  4. LEVEMIR [Concomitant]
     Active Substance: INSULIN DETEMIR
  5. VITAMIN B COMPLEX [Concomitant]
     Active Substance: CYANOCOBALAMIN\DEXPANTHENOL\NIACINAMIDE\PYRIDOXINE HYDROCHLORIDE\RIBOFLAVIN 5^-PHOSPHATE SODIUM\THIAMINE HYDROCHLORIDE\VITAMIN B COMPLEX
  6. FISH OIL [Concomitant]
     Active Substance: FISH OIL
  7. BYDUREON [Suspect]
     Active Substance: EXENATIDE
     Indication: DIABETES MELLITUS
     Route: 058
     Dates: start: 20150509, end: 20150509
  8. MULTIVITAMIN [Concomitant]
     Active Substance: VITAMINS
  9. VENTOLIN HFA [Concomitant]
     Active Substance: ALBUTEROL SULFATE
  10. GEMIFIBROZIL [Concomitant]
     Active Substance: GEMFIBROZIL
  11. OMEPRAZOLE. [Concomitant]
     Active Substance: OMEPRAZOLE
  12. NOVOLOG [Concomitant]
     Active Substance: INSULIN ASPART

REACTIONS (5)
  - Unresponsive to stimuli [None]
  - Feeling abnormal [None]
  - Unevaluable event [None]
  - Vomiting [None]
  - Tremor [None]

NARRATIVE: CASE EVENT DATE: 20150509
